FAERS Safety Report 8575519-2 (Version None)
Quarter: 2012Q3

REPORT INFORMATION
  Report Type: 
  Country: None (occurrence: None)
  Receive Date: 20120807
  Receipt Date: 20120801
  Transmission Date: 20120928
  Serious: Yes (Disabling, Other)
  Sender: FDA-Public Use
  Company Number: PHHY2012BR067515

PATIENT
  Sex: Male

DRUGS (5)
  1. AMLODOPINE BESYLATE AND VALSARTAN [Suspect]
     Indication: CARDIAC DISORDER
  2. ROSUVASTATIN [Concomitant]
     Indication: CORONARY ARTERY DISEASE
     Dosage: UNK UKN, UNK
  3. ASPIRIN [Concomitant]
     Dosage: 1 DF, QD
  4. AMLODOPINE BESYLATE AND VALSARTAN [Suspect]
     Indication: HYPERTENSION
     Dosage: 1 TABLET, DAILY
  5. OMEPRAZOLE [Concomitant]
     Indication: GASTROINTESTINAL DISORDER THERAPY
     Dosage: UNK UKN, UNK

REACTIONS (1)
  - CEREBROVASCULAR ACCIDENT [None]
